FAERS Safety Report 20606541 (Version 1)
Quarter: 2022Q1

REPORT INFORMATION
  Report Type: Spontaneous
  Country: US (occurrence: None)
  Receive Date: 20220316
  Receipt Date: 20220316
  Transmission Date: 20220423
  Serious: No
  Sender: FDA-Public Use
  Company Number: None

PATIENT
  Age: 56 Year
  Sex: Female

DRUGS (1)
  1. EVUSHELD [Suspect]
     Active Substance: CILGAVIMAB\TIXAGEVIMAB
     Indication: COVID-19
     Dosage: FREQUENCY : ONCE?
     Route: 030
     Dates: start: 20220305

REACTIONS (11)
  - Tachycardia [None]
  - Dyspnoea [None]
  - Erythema [None]
  - Rash [None]
  - Erythema [None]
  - Rash [None]
  - Oxygen saturation decreased [None]
  - Malaise [None]
  - Fatigue [None]
  - Vertigo [None]
  - Nausea [None]

NARRATIVE: CASE EVENT DATE: 20220305
